FAERS Safety Report 13868298 (Version 2)
Quarter: 2017Q3

REPORT INFORMATION
  Report Type: Spontaneous
  Country: US (occurrence: US)
  Receive Date: 20170815
  Receipt Date: 20170907
  Transmission Date: 20171127
  Serious: Yes (Other)
  Sender: FDA-Public Use
  Company Number: US-BEH-2017082772

PATIENT
  Sex: Female
  Weight: 59.86 kg

DRUGS (36)
  1. HIZENTRA [Suspect]
     Active Substance: HUMAN IMMUNOGLOBULIN G
     Indication: IMMUNODEFICIENCY COMMON VARIABLE
     Dosage: 15 G, QW
     Route: 058
     Dates: start: 20130312
  2. EPIPEN [Concomitant]
     Active Substance: EPINEPHRINE
  3. PRAVASTATIN. [Concomitant]
     Active Substance: PRAVASTATIN
  4. FOLIC ACID. [Concomitant]
     Active Substance: FOLIC ACID
  5. TRAZODONE [Concomitant]
     Active Substance: TRAZODONE HYDROCHLORIDE
  6. METHOTREXATE. [Concomitant]
     Active Substance: METHOTREXATE
  7. EVISTA [Concomitant]
     Active Substance: RALOXIFENE HYDROCHLORIDE
  8. GEODON [Concomitant]
     Active Substance: ZIPRASIDONE HYDROCHLORIDE\ZIPRASIDONE MESYLATE
  9. FEXOFENADINE [Concomitant]
     Active Substance: FEXOFENADINE\FEXOFENADINE HYDROCHLORIDE
  10. LEVOXYL [Concomitant]
     Active Substance: LEVOTHYROXINE SODIUM
  11. VITAMIN K [Concomitant]
     Active Substance: PHYTONADIONE
  12. LMX                                /00033401/ [Concomitant]
  13. BACTRIM [Concomitant]
     Active Substance: SULFAMETHOXAZOLE\TRIMETHOPRIM
  14. CYMBALTA [Concomitant]
     Active Substance: DULOXETINE HYDROCHLORIDE
  15. FERREX [Concomitant]
     Active Substance: FERRIC POLYSACCHARIDE COMPLEX
  16. TORSEMIDE. [Concomitant]
     Active Substance: TORSEMIDE
  17. HIZENTRA [Suspect]
     Active Substance: HUMAN IMMUNOGLOBULIN G
     Dosage: UNK
     Route: 058
  18. DICYCLOMINE                        /00068601/ [Concomitant]
     Active Substance: DICYCLOMINE HYDROCHLORIDE
  19. DEXTROAMPHETAMINE                  /00016601/ [Concomitant]
     Active Substance: DEXTROAMPHETAMINE
  20. ASPIRIN. [Concomitant]
     Active Substance: ASPIRIN
  21. PROTONIX [Concomitant]
     Active Substance: PANTOPRAZOLE SODIUM
  22. SINGULAIR [Concomitant]
     Active Substance: MONTELUKAST SODIUM
  23. CHOLESTYRAMINE. [Concomitant]
     Active Substance: CHOLESTYRAMINE
  24. TOVIAZ [Concomitant]
     Active Substance: FESOTERODINE FUMARATE
  25. METOCLOPRAMIDE. [Concomitant]
     Active Substance: METOCLOPRAMIDE
  26. HIZENTRA [Suspect]
     Active Substance: HUMAN IMMUNOGLOBULIN G
     Dosage: UNK
     Route: 058
  27. HIZENTRA [Suspect]
     Active Substance: HUMAN IMMUNOGLOBULIN G
     Dosage: UNK
     Route: 058
  28. DIPHENHYDRAMINE. [Concomitant]
     Active Substance: DIPHENHYDRAMINE
  29. SUCRALFATE. [Concomitant]
     Active Substance: SUCRALFATE
  30. CALCIUM [Concomitant]
     Active Substance: CALCIUM
  31. POTASSIUM [Concomitant]
     Active Substance: POTASSIUM
  32. MYRBETRIQ [Concomitant]
     Active Substance: MIRABEGRON
  33. COLESTIPOL [Concomitant]
     Active Substance: COLESTIPOL
  34. MULTIVITAMINS W/MINERALS [Concomitant]
     Active Substance: MINERALS\VITAMINS
  35. PRECOSE [Concomitant]
     Active Substance: ACARBOSE
  36. SERTRALINE [Concomitant]
     Active Substance: SERTRALINE HYDROCHLORIDE

REACTIONS (3)
  - Breast cancer [Unknown]
  - Breast prosthesis implantation [Unknown]
  - Breast conserving surgery [Unknown]
